FAERS Safety Report 9639731 (Version 1)
Quarter: 2013Q4

REPORT INFORMATION
  Report Type: Spontaneous
  Country: US (occurrence: None)
  Receive Date: 20131021
  Receipt Date: 20131021
  Transmission Date: 20140711
  Serious: Yes (Life-Threatening, Hospitalization)
  Sender: FDA-Public Use
  Company Number: None

PATIENT
  Age: 73 Year
  Sex: Male
  Weight: 90.72 kg

DRUGS (1)
  1. XARELTO 20 MG [Suspect]
     Dosage: 1 PILL @ DINNER ONCE DAILY TAKEN BY MOUTH
     Route: 048

REACTIONS (4)
  - Epistaxis [None]
  - Haemorrhage [None]
  - Large intestinal haemorrhage [None]
  - Haemoglobin decreased [None]
